FAERS Safety Report 4692623-X (Version None)
Quarter: 2005Q2

REPORT INFORMATION
  Report Type: 
  Country: None (occurrence: None)
  Receive Date: 20050617
  Receipt Date: 20040923
  Transmission Date: 20051028
  Serious: Yes (Disabling, Other)
  Sender: FDA-Public Use
  Company Number: US-NOVOPROD-239509

PATIENT
  Age: 33 Year
  Sex: Female

DRUGS (4)
  1. NOVOSEVEN [Suspect]
     Indication: OPERATIVE HAEMORRHAGE
     Dosage: 2 - 3 UNKNOWN DOSES
     Route: 042
     Dates: start: 20030801, end: 20030801
  2. FRESH FROZEN PLASMA [Concomitant]
     Indication: OPERATIVE HAEMORRHAGE
     Route: 042
  3. CRYOPRECIPITATED AHF [Concomitant]
     Indication: OPERATIVE HAEMORRHAGE
     Route: 042
  4. BLOOD AND RELATED PRODUCTS [Concomitant]
     Indication: OPERATIVE HAEMORRHAGE
     Route: 042

REACTIONS (6)
  - BLINDNESS [None]
  - CEREBRAL INFARCTION [None]
  - RETINAL ARTERY OCCLUSION [None]
  - RETINAL OEDEMA [None]
  - SEPSIS [None]
  - SHOCK [None]
